FAERS Safety Report 10444876 (Version 2)
Quarter: 2014Q4

REPORT INFORMATION
  Report Type: Spontaneous
  Country: US (occurrence: US)
  Receive Date: 20140910
  Receipt Date: 20141001
  Transmission Date: 20150528
  Serious: No
  Sender: FDA-Public Use
  Company Number: US-009507513-1409USA003927

PATIENT
  Sex: Female

DRUGS (2)
  1. FOLLISTIM [Suspect]
     Active Substance: FOLLITROPIN
     Dosage: 150 IU, FREQUENCY UNKNOWN
  2. FOLLISTIM [Suspect]
     Active Substance: FOLLITROPIN
     Dosage: 225 IU, FREQUENCY UNKNOWN

REACTIONS (2)
  - Oestradiol increased [Unknown]
  - Product quality issue [Unknown]
